FAERS Safety Report 8206465-1 (Version None)
Quarter: 2012Q1

REPORT INFORMATION
  Report Type: 
  Country: None (occurrence: None)
  Receive Date: 20120313
  Receipt Date: 20111021
  Transmission Date: 20120608
  Serious: Yes (Hospitalization, Disabling)
  Sender: FDA-Public Use
  Company Number: GB-ABBOTT-11P-167-0867378-00

PATIENT
  Age: 13 Year
  Sex: Female

DRUGS (10)
  1. VALPROATE SODIUM [Suspect]
     Route: 048
  2. VALPROATE SODIUM [Suspect]
     Route: 048
  3. VALPROATE SODIUM [Suspect]
     Route: 048
  4. VALPROATE SODIUM [Suspect]
     Route: 048
  5. CARBAMAZEPINE [Concomitant]
     Indication: PRODUCT USED FOR UNKNOWN INDICATION
  6. VALPROATE SODIUM [Suspect]
     Route: 048
  7. CLOBAZAM [Concomitant]
     Indication: PRODUCT USED FOR UNKNOWN INDICATION
  8. VALPROATE SODIUM [Suspect]
     Indication: CONVULSION
     Route: 048
     Dates: start: 20091201, end: 20091201
  9. VALPROATE SODIUM [Suspect]
     Route: 048
     Dates: start: 20091201, end: 20091201
  10. VALPROATE SODIUM [Suspect]
     Route: 048
     Dates: start: 20091201, end: 20091201

REACTIONS (6)
  - MALAISE [None]
  - CONDITION AGGRAVATED [None]
  - EPILEPSY [None]
  - LISTLESS [None]
  - VOMITING [None]
  - FATIGUE [None]
